FAERS Safety Report 15074044 (Version 1)
Quarter: 2018Q2

REPORT INFORMATION
  Report Type: Spontaneous
  Country: US (occurrence: US)
  Receive Date: 20180627
  Receipt Date: 20180627
  Transmission Date: 20180711
  Serious: No
  Sender: FDA-Public Use
  Company Number: US-TEVA-2018-US-916315

PATIENT
  Sex: Female

DRUGS (2)
  1. FLUOCINONIDE. [Suspect]
     Active Substance: FLUOCINONIDE
     Indication: INFLAMMATION
     Route: 065
     Dates: start: 20180614
  2. FLUOCINONIDE. [Suspect]
     Active Substance: FLUOCINONIDE
     Indication: PRURITUS

REACTIONS (1)
  - Drug ineffective [Unknown]
